FAERS Safety Report 6991776-8 (Version None)
Quarter: 2010Q3

REPORT INFORMATION
  Report Type: 
  Country: None (occurrence: None)
  Receive Date: 20100917
  Receipt Date: 20100907
  Transmission Date: 20110219
  Serious: No
  Sender: FDA-Public Use
  Company Number: US-PFIZER INC-2010113087

PATIENT
  Sex: Male
  Weight: 72 kg

DRUGS (11)
  1. DILANTIN [Suspect]
     Indication: EPILEPSY
     Dosage: 200 MG, 2X/DAY
     Route: 048
     Dates: start: 20080401
  2. CARVEDILOL [Concomitant]
     Dosage: UNK
  3. LASIX [Concomitant]
     Dosage: 20 MG, 1X/DAY
     Route: 048
  4. PRAVASTATIN [Concomitant]
     Dosage: 40 MG, 1X/DAY
     Route: 048
  5. NIFEDIPINE [Concomitant]
     Dosage: 90 MG, 1X/DAY
     Route: 048
  6. ISOSORBIDE [Concomitant]
     Dosage: 20 MG, 1X/DAY
     Route: 048
  7. KLOR-CON [Concomitant]
     Dosage: 10 MG, 1X/DAY
  8. COUMADIN [Concomitant]
     Dosage: 7.5 MG, 1X/DAY
     Route: 048
  9. TAMSULOSIN HYDROCHLORIDE [Concomitant]
     Dosage: UNK
     Route: 048
  10. KEPPRA [Concomitant]
     Dosage: 500 MG, 2X/DAY
     Route: 048
  11. HYDRALAZINE [Concomitant]
     Dosage: UNK

REACTIONS (1)
  - HEPATIC ENZYME INCREASED [None]
